FAERS Safety Report 4338696-5 (Version None)
Quarter: 2004Q2

REPORT INFORMATION
  Report Type: 
  Country: None (occurrence: None)
  Receive Date: 20040409
  Receipt Date: 20040405
  Transmission Date: 20050107
  Serious: Yes (Hospitalization)
  Sender: FDA-Public Use
  Company Number: 200403589

PATIENT
  Age: 70 Year
  Sex: Female

DRUGS (1)
  1. EXTRA STRENGTH TYLENOL [Suspect]
     Dosage: 1000 MG Q4H PO;  '^A LONG TIME^
     Route: 048

REACTIONS (2)
  - ASCITES [None]
  - HEPATIC CIRRHOSIS [None]
